FAERS Safety Report 7038458-4 (Version None)
Quarter: 2010Q4

REPORT INFORMATION
  Report Type: 
  Country: None (occurrence: None)
  Receive Date: 20101011
  Receipt Date: 20100201
  Transmission Date: 20110411
  Serious: Yes (Other)
  Sender: FDA-Public Use
  Company Number: US-PFIZER INC-2010014351

PATIENT
  Sex: Male
  Weight: 78.925 kg

DRUGS (2)
  1. NEURONTIN [Suspect]
     Indication: NEUROPATHY PERIPHERAL
     Dosage: UNK
  2. NEURONTIN [Suspect]
     Indication: PAIN

REACTIONS (2)
  - FEELING COLD [None]
  - NON-HODGKIN'S LYMPHOMA [None]
